FAERS Safety Report 4591439-2 (Version None)
Quarter: 2005Q1

REPORT INFORMATION
  Report Type: 
  Country: None (occurrence: None)
  Receive Date: 20050225
  Receipt Date: 20050202
  Transmission Date: 20050727
  Serious: Yes (Life-Threatening)
  Sender: FDA-Public Use
  Company Number: PHBS2005JP01825

PATIENT
  Age: 77 Year
  Sex: 0

DRUGS (1)
  1. VOLTAREN [Suspect]
     Indication: POSTOPERATIVE FEVER
     Dosage: 25 MG/DAY
     Route: 054
     Dates: start: 20050125, end: 20050125

REACTIONS (4)
  - HYPOTENSION [None]
  - KLEBSIELLA BACTERAEMIA [None]
  - SEPSIS [None]
  - SHOCK [None]
